FAERS Safety Report 9992366 (Version 1)
Quarter: 2014Q1

REPORT INFORMATION
  Report Type: Spontaneous
  Country: US (occurrence: US)
  Receive Date: 20140310
  Receipt Date: 20140310
  Transmission Date: 20141002
  Serious: Yes (Hospitalization)
  Sender: FDA-Public Use
  Company Number: US-PFIZER INC-2014064802

PATIENT
  Age: 68 Year
  Sex: Female
  Weight: 43.54 kg

DRUGS (3)
  1. CHANTIX [Suspect]
     Indication: SMOKING CESSATION THERAPY
     Dosage: UNK
     Route: 048
  2. CHANTIX [Suspect]
     Dosage: 1 MG, 2X/DAY
     Route: 048
     Dates: start: 201402, end: 20140303
  3. NICOTROL INHALER [Suspect]
     Indication: SMOKING CESSATION THERAPY
     Dosage: ON AND OFF AS NEEDED

REACTIONS (4)
  - Pneumonia [Unknown]
  - Malaise [Unknown]
  - Weight decreased [Unknown]
  - Headache [Unknown]
